FAERS Safety Report 5628283-0 (Version None)
Quarter: 2008Q1

REPORT INFORMATION
  Report Type: 
  Country: None (occurrence: None)
  Receive Date: 20080215
  Receipt Date: 20080206
  Transmission Date: 20080703
  Serious: Yes (Other)
  Sender: FDA-Public Use
  Company Number: US-PFIZER INC-2008005086

PATIENT
  Sex: Female
  Weight: 49.4 kg

DRUGS (7)
  1. CHANTIX [Suspect]
     Indication: EX-SMOKER
  2. VICODIN [Concomitant]
  3. ISOSORBIDE DINITRATE [Concomitant]
  4. ATENOLOL [Concomitant]
  5. NORVASC [Concomitant]
  6. NITROGLYCERIN [Concomitant]
  7. DALMANE [Concomitant]

REACTIONS (13)
  - ABDOMINAL DISTENSION [None]
  - ABNORMAL DREAMS [None]
  - CHEST PAIN [None]
  - DYSGEUSIA [None]
  - DYSPEPSIA [None]
  - FLATULENCE [None]
  - HEAD INJURY [None]
  - HYPOTENSION [None]
  - LOSS OF CONSCIOUSNESS [None]
  - NAUSEA [None]
  - SINUS CONGESTION [None]
  - SLEEP DISORDER [None]
  - WEIGHT DECREASED [None]
